FAERS Safety Report 8577092-1 (Version None)
Quarter: 2012Q3

REPORT INFORMATION
  Report Type: 
  Country: None (occurrence: None)
  Receive Date: 20120807
  Receipt Date: 20120730
  Transmission Date: 20120928
  Serious: No
  Sender: FDA-Public Use
  Company Number: US-B.I. PHARMACEUTICALS,INC./RIDGEFIELD-2012-BP-17197BP

PATIENT
  Sex: Female

DRUGS (5)
  1. RANITIDINE [Suspect]
     Indication: ANGIOEDEMA
     Route: 065
  2. CETIRIZINE HYDROCHLORIDE [Suspect]
     Indication: ANGIOEDEMA
     Route: 065
  3. VENLAFAXINE HYDROCHOLRIDE [Suspect]
     Indication: ANGIOEDEMA
     Route: 065
  4. FEXOFENADINE HYDROCHLORIDE [Suspect]
     Indication: ANGIOEDEMA
     Route: 048
     Dates: start: 20120101
  5. PREDNISONE TAB [Suspect]
     Indication: ANGIOEDEMA
     Route: 065

REACTIONS (1)
  - SWELLING [None]
